FAERS Safety Report 22955660 (Version 3)
Quarter: 2024Q1

REPORT INFORMATION
  Report Type: Spontaneous
  Country: JP (occurrence: JP)
  Receive Date: 20230918
  Receipt Date: 20240125
  Transmission Date: 20240410
  Serious: Yes (Other)
  Sender: FDA-Public Use
  Company Number: JP-002147023-NVSJ2023JP013490

PATIENT
  Age: 45 Year
  Sex: Female

DRUGS (2)
  1. GLYCOPYRROLATE\INDACATEROL\MOMETASONE FUROATE [Suspect]
     Active Substance: GLYCOPYRROLATE\INDACATEROL\MOMETASONE FUROATE
     Indication: Asthma
     Dosage: 1DF: INDACATEROL150UG,GLYCOPYRRONIUM50UG,MOMETASONE FUROATE160UG, UNKNOWN
  2. NEORAL [Suspect]
     Active Substance: CYCLOSPORINE
     Indication: Product used for unknown indication
     Dosage: UNK
     Route: 065

REACTIONS (6)
  - Aspiration [Unknown]
  - Cough [Unknown]
  - Renal impairment [Unknown]
  - Productive cough [Unknown]
  - Feeling abnormal [Unknown]
  - Muscle spasms [Unknown]
